FAERS Safety Report 6688888-5 (Version None)
Quarter: 2010Q2

REPORT INFORMATION
  Report Type: 
  Country: None (occurrence: None)
  Receive Date: 20100420
  Receipt Date: 20100412
  Transmission Date: 20101027
  Serious: Yes (Other)
  Sender: FDA-Public Use
  Company Number: BR-JNJFOC-20090800048

PATIENT
  Age: 35 Year
  Sex: Female
  Weight: 56 kg

DRUGS (6)
  1. ORTHO EVRA [Suspect]
     Indication: MENSTRUATION IRREGULAR
     Route: 062
  2. ORTHO EVRA [Suspect]
     Route: 062
  3. ORTHO EVRA [Suspect]
     Route: 062
  4. ORTHO EVRA [Suspect]
     Indication: CONTRACEPTION
     Route: 062
  5. ORTHO EVRA [Suspect]
     Route: 062
  6. ORTHO EVRA [Suspect]
     Route: 062

REACTIONS (4)
  - LABYRINTHITIS [None]
  - OFF LABEL USE [None]
  - PRODUCT QUALITY ISSUE [None]
  - VAGINAL HAEMORRHAGE [None]
